FAERS Safety Report 4908438-0 (Version None)
Quarter: 2006Q1

REPORT INFORMATION
  Report Type: 
  Country: None (occurrence: None)
  Receive Date: 20060210
  Receipt Date: 20050621
  Transmission Date: 20060701
  Serious: No
  Sender: FDA-Public Use
  Company Number: US-GLAXOSMITHKLINE-A0563616A

PATIENT
  Age: 74 Year
  Sex: Female

DRUGS (5)
  1. PAXIL CR [Suspect]
     Indication: DEPRESSION
     Dosage: 25MG PER DAY
     Route: 048
     Dates: start: 20030301, end: 20050301
  2. PAROXETINE HCL [Suspect]
     Indication: DEPRESSION
     Dosage: 20MG PER DAY
     Route: 048
     Dates: start: 20050301, end: 20050601
  3. LORAZEPAM [Concomitant]
  4. PROTONIX [Concomitant]
  5. RANITIDINE [Concomitant]

REACTIONS (4)
  - DRUG INEFFECTIVE [None]
  - FATIGUE [None]
  - PHARMACEUTICAL PRODUCT COMPLAINT [None]
  - SOMNOLENCE [None]
